FAERS Safety Report 6262606-7 (Version None)
Quarter: 2009Q3

REPORT INFORMATION
  Report Type: 
  Country: None (occurrence: None)
  Receive Date: 20090709
  Receipt Date: 20090706
  Transmission Date: 20100115
  Serious: No
  Sender: FDA-Public Use
  Company Number: US-B.I. PHARMACEUTICALS,INC./RIDGEFIELD-2009-BP-08107BP

PATIENT
  Age: 85 Year
  Sex: Female

DRUGS (4)
  1. SPIRIVA [Suspect]
     Indication: CHRONIC OBSTRUCTIVE PULMONARY DISEASE
     Dosage: 18 MCG
     Route: 055
     Dates: start: 20090201
  2. COUMADIN [Concomitant]
     Dosage: 2 MG
     Route: 048
  3. COREG [Concomitant]
     Indication: HYPERTENSION
     Dosage: 6.25 NR
     Route: 048
  4. BAYER ASA [Concomitant]
     Dosage: 81 MG
     Route: 048

REACTIONS (1)
  - RASH MACULAR [None]
